FAERS Safety Report 8544844-3 (Version None)
Quarter: 2012Q3

REPORT INFORMATION
  Report Type: 
  Country: None (occurrence: None)
  Receive Date: 20120727
  Receipt Date: 20120112
  Transmission Date: 20120928
  Serious: Yes (Other)
  Sender: FDA-Public Use
  Company Number: US-ROCHE-1090998

PATIENT
  Sex: Female

DRUGS (3)
  1. SINGULAIR [Concomitant]
  2. SYMBICORT [Concomitant]
  3. XOLAIR [Suspect]
     Indication: ASTHMA
     Dates: start: 20071001, end: 20110217

REACTIONS (9)
  - NODULE [None]
  - MALAISE [None]
  - CHEST X-RAY ABNORMAL [None]
  - ASTHMA [None]
  - COUGH [None]
  - DYSPNOEA [None]
  - NASAL CONGESTION [None]
  - WHEEZING [None]
  - RHINORRHOEA [None]
